FAERS Safety Report 20051769 (Version 2)
Quarter: 2021Q4

REPORT INFORMATION
  Report Type: Report from Study
  Country: DE (occurrence: None)
  Receive Date: 20211110
  Receipt Date: 20211215
  Transmission Date: 20220303
  Serious: Yes (Life-Threatening, Hospitalization)
  Sender: FDA-Public Use
  Company Number: DE-ROCHE-2953293

PATIENT
  Age: 70 Year
  Sex: Female
  Weight: 85 kg

DRUGS (3)
  1. ATEZOLIZUMAB [Suspect]
     Active Substance: ATEZOLIZUMAB
     Indication: Ovarian cancer
     Dosage: ON 27/OCT/2021, SHE RECEIVED MOST RECENT DOSE OF BLINDED ATEZOLIZUMAB PRIOR TO ONSET OF SERIOUS ADVE
     Route: 041
     Dates: start: 20211027, end: 20211210
  2. BEVACIZUMAB [Suspect]
     Active Substance: BEVACIZUMAB
     Indication: Ovarian cancer
     Dosage: ON 27/OCT/2021, SHE RECEIVED LAST DOSE OF BEVACIZUMAB (850 MG) PRIOR TO ONSET OF SERIOUS ADVERSE EVE
     Route: 042
     Dates: start: 20211027, end: 20211104
  3. PACLITAXEL [Suspect]
     Active Substance: PACLITAXEL
     Indication: Ovarian cancer
     Dosage: ON 27/OCT/2021, SHE RECEIVED MOST RECENT DOSE OF PACLITAXEL (135.2 MG) PRIOR TO ONSET OF SERIOUS ADV
     Route: 042
     Dates: start: 20211027, end: 20211210

REACTIONS (1)
  - Small intestinal perforation [Recovered/Resolved]

NARRATIVE: CASE EVENT DATE: 20211104
